FAERS Safety Report 20923419 (Version 6)
Quarter: 2022Q3

REPORT INFORMATION
  Report Type: Spontaneous
  Country: IE (occurrence: IE)
  Receive Date: 20220607
  Receipt Date: 20220801
  Transmission Date: 20221027
  Serious: Yes (Hospitalization, Other)
  Sender: FDA-Public Use
  Company Number: IE-MYLANLABS-2022M1041700

PATIENT
  Age: 63 Year
  Sex: Male

DRUGS (1)
  1. CLOZARIL [Suspect]
     Active Substance: CLOZAPINE
     Indication: Schizophrenia
     Dosage: UNK
     Route: 048
     Dates: start: 20150408

REACTIONS (5)
  - COVID-19 [Unknown]
  - Thrombocytopenia [Not Recovered/Not Resolved]
  - Leukopenia [Recovering/Resolving]
  - Neutrophil count decreased [Recovered/Resolved]
  - Eosinophil count decreased [Unknown]

NARRATIVE: CASE EVENT DATE: 20220503
